FAERS Safety Report 4502207-1 (Version None)
Quarter: 2004Q4

REPORT INFORMATION
  Report Type: 
  Country: None (occurrence: None)
  Receive Date: 20041109
  Receipt Date: 20041022
  Transmission Date: 20050328
  Serious: Yes (Death)
  Sender: FDA-Public Use
  Company Number: JP_041004965

PATIENT
  Age: 68 Year
  Sex: Male
  Weight: 51 kg

DRUGS (7)
  1. ONCOVIN [Suspect]
     Indication: DIFFUSE LARGE B-CELL LYMPHOMA STAGE IV
     Dosage: 1 MG OTHER
     Dates: start: 20040511, end: 20040623
  2. RITUXAN [Concomitant]
  3. CYCLOPHOSPHAMIDE [Concomitant]
  4. DOXORUBICIN HCL [Concomitant]
  5. NEUTROGEN       (LENOGRASTIM) [Concomitant]
  6. PREDNISOLONE [Concomitant]
  7. HYPOTENSOR (CAPTOPRIL BIOCHEMIE) [Concomitant]

REACTIONS (5)
  - BACK PAIN [None]
  - CONDITION AGGRAVATED [None]
  - INTERSTITIAL LUNG DISEASE [None]
  - OXYGEN SATURATION DECREASED [None]
  - PYREXIA [None]
